FAERS Safety Report 8610900-4 (Version None)
Quarter: 2012Q3

REPORT INFORMATION
  Report Type: 
  Country: None (occurrence: None)
  Receive Date: 20120802
  Receipt Date: 20120725
  Transmission Date: 20120928
  Serious: Yes (Other)
  Sender: FDA-Public Use
  Company Number: A0979311A

PATIENT
  Age: 30 Year
  Sex: Female
  Weight: 63.4582 kg

DRUGS (7)
  1. ALBUTEROL SULFATE AUTOHALER [Concomitant]
  2. AZITHROMYCIN [Concomitant]
  3. PREDNISONE TAB [Concomitant]
  4. CALCIUM CARBONATE [Suspect]
     Indication: DYSPEPSIA
     Dosage: TRANSPLACENTAL
     Route: 064
  5. BUDESONIDE [Concomitant]
  6. MULTI-VITAMINS [Concomitant]
  7. MONTELUKAST SODIUM [Concomitant]

REACTIONS (6)
  - PREGNANCY [None]
  - PRODUCT CONTAMINATION PHYSICAL [None]
  - MATERNAL EXPOSURE DURING PREGNANCY [None]
  - INCORRECT DOSE ADMINISTERED [None]
  - PRODUCT QUALITY ISSUE [None]
  - ASTHMA [None]
